FAERS Safety Report 20304260 (Version 1)
Quarter: 2022Q1

REPORT INFORMATION
  Report Type: Spontaneous
  Country: US (occurrence: None)
  Receive Date: 20220106
  Receipt Date: 20220106
  Transmission Date: 20220423
  Serious: Yes (Hospitalization, Other)
  Sender: FDA-Public Use
  Company Number: US-MLMSERVICE-20211221-3274773-1

PATIENT
  Age: 52 Year
  Sex: Male

DRUGS (11)
  1. PREDNISONE [Suspect]
     Active Substance: PREDNISONE
     Indication: Immunosuppressant drug therapy
     Route: 065
  2. PREDNISONE [Suspect]
     Active Substance: PREDNISONE
     Route: 065
  3. TACROLIMUS [Suspect]
     Active Substance: TACROLIMUS
     Indication: Immunosuppressant drug therapy
     Dosage: 9-11 NG/ML AT 0-3 MONTHS
     Route: 065
  4. TACROLIMUS [Suspect]
     Active Substance: TACROLIMUS
     Dosage: 6-8 NG/ML AFTER 6 MONTHS
  5. TACROLIMUS [Suspect]
     Active Substance: TACROLIMUS
     Dosage: 7-9 NG/ML 3-6 MONTHS
     Route: 065
  6. THYMOCYTE IMMUNE GLOBULIN NOS [Suspect]
     Active Substance: THYMOCYTE IMMUNE GLOBULIN NOS
     Indication: Immunosuppressant drug therapy
     Dosage: UNKNOWN
     Route: 065
  7. VALGANCICLOVIR [Suspect]
     Active Substance: VALGANCICLOVIR
     Indication: Antiviral prophylaxis
     Route: 065
  8. VALGANCICLOVIR [Suspect]
     Active Substance: VALGANCICLOVIR
     Dosage: EVERY MONDAY/THURSDAY
     Route: 065
  9. VALGANCICLOVIR [Suspect]
     Active Substance: VALGANCICLOVIR
     Route: 065
  10. MYCOPHENOLIC ACID [Suspect]
     Active Substance: MYCOPHENOLIC ACID
     Indication: Immunosuppressant drug therapy
     Route: 065
  11. MYCOPHENOLIC ACID [Suspect]
     Active Substance: MYCOPHENOLIC ACID
     Dosage: DOSE HALVED
     Route: 065

REACTIONS (6)
  - Cytomegalovirus viraemia [Recovered/Resolved]
  - Gene mutation [Unknown]
  - Pathogen resistance [Recovered/Resolved]
  - Pneumonia cytomegaloviral [Recovered/Resolved]
  - Renal impairment [Unknown]
  - Leukopenia [Recovered/Resolved]
